FAERS Safety Report 13396172 (Version 1)
Quarter: 2017Q1

REPORT INFORMATION
  Report Type: Spontaneous
  Country: US (occurrence: US)
  Receive Date: 20170331
  Receipt Date: 20170331
  Transmission Date: 20170429
  Serious: Yes (Hospitalization)
  Sender: FDA-Public Use
  Company Number: None

PATIENT
  Age: 70 Year
  Sex: Male

DRUGS (1)
  1. WARFARIN [Suspect]
     Active Substance: WARFARIN
     Indication: ATRIAL FIBRILLATION
     Route: 048
     Dates: start: 20160224, end: 20160630

REACTIONS (5)
  - Faeces discoloured [None]
  - Overdose [None]
  - International normalised ratio increased [None]
  - Gastric polyps [None]
  - Melaena [None]

NARRATIVE: CASE EVENT DATE: 20160708
